FAERS Safety Report 8127473-5 (Version None)
Quarter: 2011Q4

REPORT INFORMATION
  Report Type: 
  Country: None (occurrence: None)
  Receive Date: 20111227
  Receipt Date: 20111101
  Transmission Date: 20120403
  Serious: No
  Sender: FDA-Public Use
  Company Number: PHEH2011US008702

PATIENT
  Age: 27 Year
  Sex: Female
  Weight: 118.8 kg

DRUGS (4)
  1. GILENYA [Suspect]
     Dosage: 0.5 MG, EVERY DAY, ORAL
     Route: 048
  2. GABAPENTIN (GABAPENTIN) CAPSULE [Concomitant]
  3. VITAMIN D (ERGOCALCIFEROL) CAPSULE [Concomitant]
  4. TREXIMET (NAPROXEN SODIUM, SUMATRIPTAN SUCCINATE) TABLET [Concomitant]

REACTIONS (4)
  - PARAESTHESIA [None]
  - VOMITING [None]
  - NAUSEA [None]
  - HEADACHE [None]
